FAERS Safety Report 16084220 (Version 1)
Quarter: 2019Q2

REPORT INFORMATION
  Report Type: Spontaneous
  Country: US (occurrence: US)
  Receive Date: 20190316
  Receipt Date: 20190316
  Transmission Date: 20190711
  Serious: Yes (Other)
  Sender: FDA-Public Use
  Company Number: None

PATIENT
  Age: 75 Year
  Sex: Female

DRUGS (1)
  1. CAPECITABINE. [Suspect]
     Active Substance: CAPECITABINE
     Indication: BREAST CANCER
     Dosage: ?          OTHER FREQUENCY:3 TABS TWICE DAILY;?
     Route: 048

REACTIONS (6)
  - Skin discolouration [None]
  - Burning sensation [None]
  - Onychomadesis [None]
  - Tongue discolouration [None]
  - Decreased appetite [None]
  - Taste disorder [None]

NARRATIVE: CASE EVENT DATE: 20190308
